FAERS Safety Report 9961637 (Version 1)
Quarter: 2014Q1

REPORT INFORMATION
  Report Type: Report from Study
  Country: US (occurrence: US)
  Receive Date: 20140305
  Receipt Date: 20140305
  Transmission Date: 20141002
  Serious: No
  Sender: FDA-Public Use
  Company Number: US-ABBVIE-13P-163-1114429-00

PATIENT
  Age: 44 Year
  Sex: Female

DRUGS (9)
  1. HUMIRA [Suspect]
     Indication: CROHN^S DISEASE
     Dosage: LOADING DOSE
     Dates: start: 20130628, end: 20130628
  2. HUMIRA [Suspect]
  3. DILAUDID [Concomitant]
     Indication: PAIN
  4. MS OXYCONTIN [Concomitant]
     Indication: PAIN
  5. ELAVIL [Concomitant]
     Indication: PAIN
  6. AMBIEN [Concomitant]
     Indication: SLEEP DISORDER THERAPY
     Dosage: AT NIGHT
  7. XANAX [Concomitant]
     Indication: ANXIETY
  8. DULERA [Concomitant]
     Indication: DYSPNOEA
  9. ANOTHER INHALER SHORT ACTING [Concomitant]
     Indication: DYSPNOEA

REACTIONS (4)
  - Nausea [Not Recovered/Not Resolved]
  - Injection site erythema [Not Recovered/Not Resolved]
  - Injection site bruising [Not Recovered/Not Resolved]
  - Injection site rash [Not Recovered/Not Resolved]
